FAERS Safety Report 26188380 (Version 1)
Quarter: 2025Q4

REPORT INFORMATION
  Report Type: Spontaneous
  Country: GB (occurrence: GB)
  Receive Date: 20251222
  Receipt Date: 20251222
  Transmission Date: 20260118
  Serious: Yes (Hospitalization, Other)
  Sender: ABBVIE
  Company Number: None

PATIENT
  Age: 45 Year
  Sex: Male
  Weight: 92 kg

DRUGS (2)
  1. ATOGEPANT [Suspect]
     Active Substance: ATOGEPANT
     Indication: Adverse drug reaction
     Dosage: 60 MG ONCE A DAY, MORNING
     Route: 048
     Dates: start: 20250503, end: 2025
  2. ATOGEPANT [Suspect]
     Active Substance: ATOGEPANT
     Indication: Adverse drug reaction
     Route: 048
     Dates: start: 2025

REACTIONS (5)
  - Condition aggravated [Not Recovered/Not Resolved]
  - Decreased appetite [Not Recovered/Not Resolved]
  - Medication error [Unknown]
  - Weight loss poor [Not Recovered/Not Resolved]
  - Migraine [Not Recovered/Not Resolved]

NARRATIVE: CASE EVENT DATE: 20250101
